FAERS Safety Report 5857869-3 (Version None)
Quarter: 2008Q3

REPORT INFORMATION
  Report Type: 
  Country: None (occurrence: None)
  Receive Date: 20080825
  Receipt Date: 20080825
  Transmission Date: 20090109
  Serious: Yes (Life-Threatening, Other)
  Sender: FDA-Public Use
  Company Number: None

PATIENT
  Age: 29 Year
  Sex: Female
  Weight: 68.0396 kg

DRUGS (3)
  1. VELIVET [Suspect]
     Indication: DYSMENORRHOEA
     Dosage: VARIABLE DOSE DAILY PO
     Route: 048
     Dates: start: 20080201, end: 20080816
  2. SYNTHROID [Concomitant]
  3. CLARITIN [Concomitant]

REACTIONS (1)
  - DEEP VEIN THROMBOSIS [None]
